FAERS Safety Report 13185079 (Version 2)
Quarter: 2017Q2

REPORT INFORMATION
  Report Type: Spontaneous
  Country: US (occurrence: US)
  Receive Date: 20170203
  Receipt Date: 20170503
  Transmission Date: 20170830
  Serious: No
  Sender: FDA-Public Use
  Company Number: US-PFIZER INC-2017048677

PATIENT
  Age: 70 Year
  Sex: Female

DRUGS (2)
  1. FLECTOR [Suspect]
     Active Substance: DICLOFENAC EPOLAMINE
     Indication: OSTEOARTHRITIS
     Dosage: 1 DF, 2X/DAY
     Route: 062
     Dates: start: 201502
  2. ASPIRIN/HYDROCODONE [Concomitant]
     Indication: OSTEOARTHRITIS
     Dosage: 325 MG/10 MG, 2X/DAY
     Dates: start: 201502

REACTIONS (1)
  - Product use in unapproved indication [Unknown]

NARRATIVE: CASE EVENT DATE: 201502
